FAERS Safety Report 4387791-3 (Version None)
Quarter: 2004Q2

REPORT INFORMATION
  Report Type: 
  Country: None (occurrence: None)
  Receive Date: 20040630
  Receipt Date: 20011022
  Transmission Date: 20050107
  Serious: Yes (Other)
  Sender: FDA-Public Use
  Company Number: JP-GLAXOSMITHKLINE-B0124058A

PATIENT
  Age: 43 Year
  Sex: Male
  Weight: 62 kg

DRUGS (2)
  1. EPIVIR [Suspect]
     Indication: HIV INFECTION
     Dosage: 300MGD PER DAY
     Route: 048
     Dates: start: 19991214
  2. STAVUDINE [Suspect]
     Indication: HEPATITIS B
     Dosage: 80MGD PER DAY
     Route: 048
     Dates: start: 19991214

REACTIONS (3)
  - ALANINE AMINOTRANSFERASE INCREASED [None]
  - ASPARTATE AMINOTRANSFERASE INCREASED [None]
  - HEPATIC FUNCTION ABNORMAL [None]
